FAERS Safety Report 9055370 (Version 1)
Quarter: 2013Q1

REPORT INFORMATION
  Report Type: Report from Study
  Country: US (occurrence: US)
  Receive Date: 20130206
  Receipt Date: 20130206
  Transmission Date: 20140127
  Serious: Yes (Other)
  Sender: FDA-Public Use
  Company Number: US-ROCHE-1186736

PATIENT
  Sex: Female

DRUGS (1)
  1. VEMURAFENIB [Suspect]
     Indication: PRODUCT USED FOR UNKNOWN INDICATION
     Route: 065

REACTIONS (7)
  - Myalgia [Unknown]
  - Arthralgia [Unknown]
  - Inflammation [Unknown]
  - Alopecia [Unknown]
  - Erythema [Unknown]
  - Skin mass [Unknown]
  - Skin mass [Unknown]
